FAERS Safety Report 15466973 (Version 1)
Quarter: 2018Q4

REPORT INFORMATION
  Report Type: Report from Study
  Country: US (occurrence: US)
  Receive Date: 20181005
  Receipt Date: 20181005
  Transmission Date: 20190204
  Serious: Yes (Death, Other)
  Sender: FDA-Public Use
  Company Number: US-EMD SERONO-E2B_90060346

PATIENT
  Age: 55 Year
  Sex: Female

DRUGS (1)
  1. REBIF [Suspect]
     Active Substance: INTERFERON BETA-1A
     Indication: PRODUCT USED FOR UNKNOWN INDICATION
     Route: 058
     Dates: start: 20180219

REACTIONS (3)
  - Death [Fatal]
  - Cardiac failure congestive [Unknown]
  - Myocardial infarction [Unknown]

NARRATIVE: CASE EVENT DATE: 2018
